FAERS Safety Report 20844271 (Version 1)
Quarter: 2022Q2

REPORT INFORMATION
  Report Type: Spontaneous
  Country: AU (occurrence: AU)
  Receive Date: 20220518
  Receipt Date: 20220518
  Transmission Date: 20220720
  Serious: Yes (Life-Threatening, Hospitalization, Other)
  Sender: FDA-Public Use
  Company Number: AU-MLMSERVICE-20220510-3550910-1

PATIENT
  Age: 5 Decade

DRUGS (2)
  1. VENLAFAXINE HCL [Suspect]
     Active Substance: VENLAFAXINE HYDROCHLORIDE
     Dosage: UNK (UNKNOWN AMOUNTS)
     Route: 048
  2. AMITRIPTYLINE [Suspect]
     Active Substance: AMITRIPTYLINE
     Dosage: UNK (UNKNOWN AMOUNTS)
     Route: 048

REACTIONS (7)
  - Sinus tachycardia [Unknown]
  - Seizure [Unknown]
  - Cardiotoxicity [Unknown]
  - Electrocardiogram QRS complex prolonged [Unknown]
  - Toxicity to various agents [Unknown]
  - Intentional overdose [Unknown]
  - Depressed level of consciousness [Unknown]
